FAERS Safety Report 6400812-9 (Version None)
Quarter: 2009Q4

REPORT INFORMATION
  Report Type: 
  Country: None (occurrence: None)
  Receive Date: 20091014
  Receipt Date: 20091001
  Transmission Date: 20100525
  Serious: Yes (Death)
  Sender: FDA-Public Use
  Company Number: GB-GENENTECH-291853

PATIENT
  Age: 23 Year
  Sex: Female

DRUGS (1)
  1. MABTHERA [Suspect]
     Indication: POLYMYOSITIS
     Route: 065

REACTIONS (1)
  - RESPIRATORY ARREST [None]
